FAERS Safety Report 25082200 (Version 1)
Quarter: 2025Q1

REPORT INFORMATION
  Report Type: Report from Study
  Country: ES (occurrence: ES)
  Receive Date: 20250317
  Receipt Date: 20250317
  Transmission Date: 20250408
  Serious: No
  Sender: TAKEDA
  Company Number: ES-TAKEDA-2025TUS025743

PATIENT
  Age: 47 Year
  Sex: Female

DRUGS (26)
  1. TEDUGLUTIDE [Suspect]
     Active Substance: TEDUGLUTIDE
     Indication: Short-bowel syndrome
     Dosage: 2.4 MILLIGRAM, QD
     Dates: start: 20201105
  2. TEDUGLUTIDE [Suspect]
     Active Substance: TEDUGLUTIDE
  3. TEDUGLUTIDE [Suspect]
     Active Substance: TEDUGLUTIDE
  4. TEDUGLUTIDE [Suspect]
     Active Substance: TEDUGLUTIDE
  5. Magnogene [Concomitant]
     Indication: Prophylaxis
     Dosage: UNK UNK, QD
     Dates: start: 20020509
  6. CALCIFEDIOL [Concomitant]
     Active Substance: CALCIFEDIOL
     Indication: Vitamin supplementation
  7. FLUTICASONE FUROATE [Concomitant]
     Active Substance: FLUTICASONE FUROATE
     Indication: Asthma
  8. FLUTICASONE FUROATE [Concomitant]
     Active Substance: FLUTICASONE FUROATE
     Indication: Rhinitis
  9. EBASTINE [Concomitant]
     Active Substance: EBASTINE
     Indication: Rhinitis allergic
     Dosage: UNK UNK, QD
     Dates: start: 20200511
  10. SYMBICORT [Concomitant]
     Active Substance: BUDESONIDE\FORMOTEROL FUMARATE DIHYDRATE
     Indication: Asthma
  11. SYMBICORT [Concomitant]
     Active Substance: BUDESONIDE\FORMOTEROL FUMARATE DIHYDRATE
     Indication: Rhinitis allergic
  12. RIVOTRIL [Concomitant]
     Active Substance: CLONAZEPAM
     Indication: Anxiety
     Dosage: 0.50 MILLIGRAM, QD
     Dates: start: 20120222
  13. RIFAXIMIN [Concomitant]
     Active Substance: RIFAXIMIN
     Indication: Overgrowth bacterial
     Dosage: UNK UNK, TID
     Dates: start: 20170328
  14. TAUROLIDINE [Concomitant]
     Active Substance: TAUROLIDINE
     Indication: Device related infection
  15. DEXKETOPROFEN TROMETAMOL [Concomitant]
     Active Substance: DEXKETOPROFEN TROMETAMOL
     Indication: Nephritic syndrome
     Dosage: 25 MILLIGRAM, TID
     Dates: start: 20201002
  16. PRISTIQ EXTENDED-RELEASE [Concomitant]
     Active Substance: DESVENLAFAXINE SUCCINATE
     Indication: Depression
     Dosage: UNK UNK, QD
     Dates: start: 20211207
  17. Duofemme [Concomitant]
     Indication: Premenstrual syndrome
     Dosage: UNK UNK, QD
     Dates: start: 20220726
  18. BISOPROLOL [Concomitant]
     Active Substance: BISOPROLOL
     Indication: Ventricular dysfunction
     Dosage: 2.5 MILLIGRAM, QD
     Dates: start: 20231116
  19. RAMIPRIL [Concomitant]
     Active Substance: RAMIPRIL
     Indication: Ventricular dysfunction
     Dosage: 2.5 MILLIGRAM, QD
     Dates: start: 20231116
  20. LANSOPRAZOLE [Concomitant]
     Active Substance: LANSOPRAZOLE
     Indication: Abdominal pain upper
     Dosage: 30 MILLIGRAM, BID
     Dates: start: 20240429
  21. FOSFOMYCIN [Concomitant]
     Active Substance: FOSFOMYCIN
     Indication: Urinary tract infection
     Dosage: 3 GRAM, QD
     Dates: start: 20240731
  22. EPLERENONE [Concomitant]
     Active Substance: EPLERENONE
     Indication: Ventricular dysfunction
     Dosage: 25 MILLIGRAM, QD
     Dates: start: 20240731
  23. EMPAGLIFLOZIN [Concomitant]
     Active Substance: EMPAGLIFLOZIN
     Indication: Ventricular dysfunction
     Dosage: 10 MILLIGRAM, QD
     Dates: start: 20231116
  24. Micaldeos [Concomitant]
     Indication: Hyperoxaluria
     Dosage: UNK UNK, BID
     Dates: start: 20240425
  25. DOXYCYCLINE [Concomitant]
     Active Substance: DOXYCYCLINE
     Indication: Overgrowth bacterial
  26. METRONIDAZOLE [Concomitant]
     Active Substance: METRONIDAZOLE
     Indication: Overgrowth bacterial

REACTIONS (2)
  - Gastric polyps [Recovered/Resolved]
  - Large intestine polyp [Recovered/Resolved]

NARRATIVE: CASE EVENT DATE: 20240605
